FAERS Safety Report 14102745 (Version 2)
Quarter: 2017Q4

REPORT INFORMATION
  Report Type: Report from Study
  Country: FR (occurrence: FR)
  Receive Date: 20171018
  Receipt Date: 20171025
  Transmission Date: 20180321
  Serious: Yes (Other)
  Sender: FDA-Public Use
  Company Number: FR-VIIV HEALTHCARE LIMITED-FR2017GSK159909

PATIENT
  Sex: Female

DRUGS (4)
  1. REYATAZ [Suspect]
     Active Substance: ATAZANAVIR SULFATE
     Indication: HIV INFECTION
     Dosage: UNK
     Dates: start: 20160501, end: 20170129
  2. NORVIR [Suspect]
     Active Substance: RITONAVIR
     Indication: HIV INFECTION
     Dosage: UNK
     Dates: start: 20160501, end: 20170129
  3. ABACAVIR SULFATE + LAMIVUDINE [Suspect]
     Active Substance: ABACAVIR SULFATE\LAMIVUDINE
     Indication: HIV INFECTION
     Dosage: UNK
     Dates: start: 20160501, end: 20170129
  4. PREZISTA [Suspect]
     Active Substance: DARUNAVIR ETHANOLATE
     Indication: HIV INFECTION
     Dosage: UNK
     Dates: start: 20160501, end: 20170129

REACTIONS (11)
  - Erythema [Unknown]
  - Breast disorder [Unknown]
  - Low set ears [Unknown]
  - Dermatitis exfoliative [Unknown]
  - Left ventricular dilatation [Unknown]
  - Acoustic stimulation tests abnormal [Unknown]
  - Congenital naevus [Unknown]
  - Foetal exposure during pregnancy [Unknown]
  - Foetal growth restriction [Unknown]
  - Eosinophilia [Unknown]
  - Low birth weight baby [Unknown]
